FAERS Safety Report 9820144 (Version 1)
Quarter: 2014Q1

REPORT INFORMATION
  Report Type: Spontaneous
  Country: US (occurrence: None)
  Receive Date: 20140113
  Receipt Date: 20140113
  Transmission Date: 20141002
  Serious: Yes (Other)
  Sender: FDA-Public Use
  Company Number: None

PATIENT
  Age: 44 Year
  Sex: Female
  Weight: 73.03 kg

DRUGS (14)
  1. BETASERON [Suspect]
     Indication: MULTIPLE SCLEROSIS RELAPSE
     Dosage: 1 SHOT , AT BEDTIME
     Route: 030
     Dates: start: 20131116, end: 20131216
  2. TOPAMAX [Concomitant]
  3. NUVIGIL [Concomitant]
  4. ADDERALL [Concomitant]
  5. BUSPAR [Concomitant]
  6. AMBIEN [Concomitant]
  7. CATAFLAM [Concomitant]
  8. FLEXERIL [Concomitant]
  9. PHENERGAN [Concomitant]
  10. ZOFRAN [Concomitant]
  11. MULTIVITAMIN [Concomitant]
  12. STOOL SOFTENER [Concomitant]
  13. COCONUT OIL [Concomitant]
  14. MELATONIN [Concomitant]

REACTIONS (7)
  - Stress [None]
  - Migraine [None]
  - Frustration [None]
  - Multiple sclerosis [None]
  - Impaired work ability [None]
  - Depression [None]
  - Activities of daily living impaired [None]
